FAERS Safety Report 8479792-0 (Version None)
Quarter: 2012Q2

REPORT INFORMATION
  Report Type: 
  Country: None (occurrence: None)
  Receive Date: 20120629
  Receipt Date: 20120621
  Transmission Date: 20120825
  Serious: Yes (Other)
  Sender: FDA-Public Use
  Company Number: US-ABBOTT-12P-163-0949527-00

PATIENT
  Sex: Female
  Weight: 72.64 kg

DRUGS (5)
  1. HUMIRA [Suspect]
     Indication: COLITIS ULCERATIVE
     Route: 058
     Dates: start: 20071001, end: 20080601
  2. HUMIRA [Suspect]
     Route: 058
     Dates: start: 20080601, end: 20110801
  3. ASACOL [Concomitant]
     Indication: COLITIS ULCERATIVE
     Route: 048
  4. HUMIRA [Suspect]
     Route: 058
     Dates: start: 20120401, end: 20120601
  5. HUMIRA [Suspect]
     Route: 058
     Dates: start: 20120601

REACTIONS (14)
  - INFLAMMATORY MARKER INCREASED [None]
  - GAIT DISTURBANCE [None]
  - MALIGNANT MELANOMA [None]
  - COUGH [None]
  - TENDON RUPTURE [None]
  - RASH MACULAR [None]
  - SJOGREN'S SYNDROME [None]
  - LYMPHADENOPATHY [None]
  - LYMPH NODE PAIN [None]
  - LIGAMENT RUPTURE [None]
  - COLITIS ULCERATIVE [None]
  - SCAR [None]
  - GASTROINTESTINAL HAEMORRHAGE [None]
  - EXPIRED DRUG ADMINISTERED [None]
